FAERS Safety Report 6201230-9 (Version None)
Quarter: 2009Q2

REPORT INFORMATION
  Report Type: 
  Country: None (occurrence: None)
  Receive Date: 20090526
  Receipt Date: 20090514
  Transmission Date: 20091009
  Serious: Yes (Other)
  Sender: FDA-Public Use
  Company Number: US-JNJFOC-20090503489

PATIENT
  Age: 44 Year
  Sex: Female

DRUGS (1)
  1. INFLIXIMAB [Suspect]
     Indication: ANKYLOSING SPONDYLITIS
     Dosage: TREATMENT FOR 18 MONTHS
     Route: 042

REACTIONS (1)
  - MYELOPATHY [None]
